FAERS Safety Report 11309611 (Version 1)
Quarter: 2015Q3

REPORT INFORMATION
  Report Type: Spontaneous
  Country: CH (occurrence: CH)
  Receive Date: 20150724
  Receipt Date: 20150724
  Transmission Date: 20151125
  Serious: Yes (Other)
  Sender: FDA-Public Use
  Company Number: PHHY2014CH032435

PATIENT
  Age: 37 Year
  Sex: Female

DRUGS (2)
  1. CO-LOSARTAN [Suspect]
     Active Substance: HYDROCHLOROTHIAZIDE\LOSARTAN
     Dosage: 50 MG, QD
     Route: 064
     Dates: start: 20130101, end: 20140205
  2. CO-LOSARTAN [Suspect]
     Active Substance: HYDROCHLOROTHIAZIDE\LOSARTAN
     Indication: ESSENTIAL HYPERTENSION
     Dosage: 1 DF, QD
     Dates: start: 20130101, end: 20140205

REACTIONS (4)
  - Gestational diabetes [Unknown]
  - Pre-eclampsia [Recovered/Resolved]
  - Maternal exposure before pregnancy [Unknown]
  - Exposure during pregnancy [Unknown]

NARRATIVE: CASE EVENT DATE: 2014
